FAERS Safety Report 9000031 (Version 1)
Quarter: 2013Q1

REPORT INFORMATION
  Report Type: Spontaneous
  Country: JP (occurrence: JP)
  Receive Date: 20130102
  Receipt Date: 20130102
  Transmission Date: 20140127
  Serious: Yes (Hospitalization, Other)
  Sender: FDA-Public Use
  Company Number: JP-PFIZER INC-2012283384

PATIENT
  Age: 73 Year
  Sex: Male
  Weight: 60 kg

DRUGS (15)
  1. SOLU-MEDROL [Suspect]
     Indication: INTERSTITIAL LUNG DISEASE
     Dosage: 1000 MG, 1X/DAY
     Route: 041
     Dates: start: 20100730, end: 20100802
  2. RHEUMATREX [Suspect]
     Indication: RHEUMATOID ARTHRITIS
     Dosage: 4 MG, WEEKLY
     Route: 048
     Dates: start: 20100430, end: 20100610
  3. RHEUMATREX [Suspect]
     Dosage: 6 MG, WEEKLY
     Route: 048
     Dates: start: 20100611, end: 20100720
  4. PREDNISOLONE [Suspect]
     Indication: INTERSTITIAL LUNG DISEASE
     Dosage: 40 MG, 1X/DAY
     Dates: start: 20100801, end: 20100802
  5. PREDNISOLONE [Suspect]
     Indication: INTERSTITIAL LUNG DISEASE
     Dosage: 5 MG, 8X/DAY
     Route: 048
     Dates: start: 20100802, end: 20100805
  6. PREDNISOLONE [Suspect]
     Dosage: 5 MG, 7X/DAY
     Route: 048
     Dates: start: 20100806, end: 20100808
  7. PREDNISOLONE [Suspect]
     Dosage: 5 MG, 6X/DAY
     Route: 048
     Dates: start: 20100809, end: 20100812
  8. PREDNISOLONE [Suspect]
     Dosage: 5 MG, 5X/DAY
     Route: 048
     Dates: start: 20100813, end: 20100819
  9. PREDNISOLONE [Suspect]
     Dosage: 5 MG, 4X/DAY
     Route: 048
     Dates: start: 20100820, end: 20100826
  10. PREDNISOLONE [Suspect]
     Dosage: 5 MG, 3X/DAY
     Route: 048
     Dates: start: 20100827, end: 20100902
  11. PREDNISOLONE [Suspect]
     Dosage: 5 MG, 2.5X/DAY
     Route: 048
     Dates: start: 20100903, end: 20100909
  12. PREDNISOLONE [Suspect]
     Dosage: 5 MG, 2X/DAY
     Route: 048
     Dates: start: 20100910, end: 20100929
  13. PREDNISOLONE [Suspect]
     Dosage: 9 MG DAILY (5 MG, 1X/DAY + 1 MG, 4X/DAY)
     Route: 048
     Dates: start: 20100930, end: 20101002
  14. LOXONIN [Suspect]
     Indication: RHEUMATOID ARTHRITIS
     Dosage: 60 MG, 2X/DAY
     Route: 048
     Dates: start: 20100924, end: 20101002
  15. MUCOSTA [Concomitant]
     Indication: GASTRITIS
     Dosage: 100 MG, 3X/DAY
     Route: 048
     Dates: start: 20100924, end: 20101002

REACTIONS (2)
  - Duodenal ulcer haemorrhage [Recovered/Resolved]
  - Shock haemorrhagic [Unknown]
